FAERS Safety Report 16574272 (Version 1)
Quarter: 2019Q3

REPORT INFORMATION
  Report Type: Spontaneous
  Country: US (occurrence: US)
  Receive Date: 20190715
  Receipt Date: 20190715
  Transmission Date: 20191004
  Serious: No
  Sender: FDA-Public Use
  Company Number: US-NOVOPROD-663252

PATIENT
  Age: 68 Year
  Sex: Male
  Weight: 90.7 kg

DRUGS (2)
  1. OZEMPIC [Suspect]
     Active Substance: SEMAGLUTIDE
     Dosage: 0.5MG QW
     Route: 058
  2. OZEMPIC [Suspect]
     Active Substance: SEMAGLUTIDE
     Indication: DIABETES MELLITUS
     Dosage: UNK
     Route: 058
     Dates: start: 201812

REACTIONS (3)
  - Injection site haematoma [Not Recovered/Not Resolved]
  - Visual impairment [Unknown]
  - Injection site injury [Recovered/Resolved]

NARRATIVE: CASE EVENT DATE: 20190513
